FAERS Safety Report 14878834 (Version 5)
Quarter: 2018Q3

REPORT INFORMATION
  Report Type: Report from Study
  Country: DE (occurrence: DE)
  Receive Date: 20180511
  Receipt Date: 20180919
  Transmission Date: 20181010
  Serious: Yes (Hospitalization, Disabling)
  Sender: FDA-Public Use
  Company Number: DE-ROCHE-2116892

PATIENT
  Age: 60 Year
  Sex: Female
  Weight: 84 kg

DRUGS (15)
  1. SPIRIVA [Concomitant]
     Active Substance: TIOTROPIUM BROMIDE MONOHYDRATE
     Indication: BACTERIAL INFECTION
  2. METFORMIN [Concomitant]
     Active Substance: METFORMIN HYDROCHLORIDE
     Indication: TYPE 2 DIABETES MELLITUS
     Route: 065
     Dates: start: 2014
  3. OPIPRAM [Concomitant]
     Active Substance: OPIPRAMOL HYDROCHLORIDE
     Indication: DEPRESSION
     Route: 065
     Dates: start: 2008
  4. SPIRIVA [Concomitant]
     Active Substance: TIOTROPIUM BROMIDE MONOHYDRATE
     Indication: LOCALISED INFECTION
     Route: 065
     Dates: start: 20161116
  5. NAB?PACLITAXEL [Suspect]
     Active Substance: PACLITAXEL
     Indication: BREAST CANCER METASTATIC
     Dosage: DAYS 1, 8, AND 15 OF EACH 28?DAY CYCLE.?DATE OF MOST RECENT DOSE OF NAB?PACLITAXEL PRIOR TO SAE ONSE
     Route: 042
     Dates: start: 20160420
  6. BLINDED ATEZOLIZUMAB [Suspect]
     Active Substance: ATEZOLIZUMAB
     Indication: BREAST CANCER METASTATIC
     Dosage: DAYS 1 AND 15 OF EACH 28?DAY CYCLE ?DATE OF MOST RECENT DOSE OF BLINDED ATEZOLIZUMAB PRIOR TO SAE ON
     Route: 042
     Dates: start: 20160420
  7. BISOPROLOL [Concomitant]
     Active Substance: BISOPROLOL
     Indication: HYPERTENSION
     Route: 065
     Dates: start: 2009
  8. L?THYROXIN [Concomitant]
     Active Substance: LEVOTHYROXINE SODIUM
     Indication: HYPOTHYROIDISM
     Route: 065
     Dates: start: 2012
  9. ESOMEPRAZOL [Concomitant]
     Active Substance: ESOMEPRAZOLE
     Indication: DYSPEPSIA
     Route: 065
     Dates: start: 2015
  10. SEVIKAR HCT [Concomitant]
     Active Substance: AMLODIPINE BESYLATE\HYDROCHLOROTHIAZIDE\OLMESARTAN MEDOXOMIL
     Indication: HYPERTENSION
     Route: 065
     Dates: start: 20160723
  11. CARBOPLATIN. [Concomitant]
     Active Substance: CARBOPLATIN
     Route: 065
     Dates: start: 20170315, end: 20180405
  12. LYRICA [Concomitant]
     Active Substance: PREGABALIN
     Indication: POLYNEUROPATHY
     Route: 065
     Dates: start: 20170210
  13. GEMCITABINE [Concomitant]
     Active Substance: GEMCITABINE\GEMCITABINE HYDROCHLORIDE
     Route: 065
     Dates: start: 20170315, end: 20180405
  14. ATEZOLIZUMAB. [Suspect]
     Active Substance: ATEZOLIZUMAB
     Indication: BREAST CANCER METASTATIC
     Dosage: DAYS 1 AND 15 OF EACH 28?DAY CYCLE ?DATE OF MOST RECENT DOSE OF ATEZOLIZUMAB PRIOR TO SAE ONSET: 06/
     Route: 042
  15. BONDRONAT [Concomitant]
     Active Substance: IBANDRONATE SODIUM
     Indication: METASTASES TO BONE
     Route: 065
     Dates: start: 20160329

REACTIONS (1)
  - Optic neuropathy [Not Recovered/Not Resolved]

NARRATIVE: CASE EVENT DATE: 20180109
